FAERS Safety Report 25336969 (Version 1)
Quarter: 2025Q2

REPORT INFORMATION
  Report Type: Report from Study
  Country: CA (occurrence: CA)
  Receive Date: 20250520
  Receipt Date: 20250520
  Transmission Date: 20250717
  Serious: Yes (Other)
  Sender: NOVARTIS
  Company Number: CA-002147023-NVSC2025CA080336

PATIENT
  Age: 55 Year
  Sex: Male

DRUGS (1)
  1. LEQVIO [Suspect]
     Active Substance: INCLISIRAN SODIUM
     Indication: Type IIa hyperlipidaemia
     Route: 058
     Dates: start: 20250206

REACTIONS (6)
  - Diabetes mellitus [Unknown]
  - Concomitant disease aggravated [Unknown]
  - Malaise [Unknown]
  - Arthralgia [Unknown]
  - Hypersensitivity [Unknown]
  - Hypertension [Unknown]

NARRATIVE: CASE EVENT DATE: 20250206
